FAERS Safety Report 6044245-6 (Version None)
Quarter: 2009Q1

REPORT INFORMATION
  Report Type: 
  Country: None (occurrence: None)
  Receive Date: 20090120
  Receipt Date: 20090109
  Transmission Date: 20090719
  Serious: Yes (Hospitalization, Disabling)
  Sender: FDA-Public Use
  Company Number: US-MERCK-0810USA03095

PATIENT
  Age: 56 Year
  Sex: Female

DRUGS (1)
  1. FOSAMAX [Suspect]
     Indication: OSTEOPOROSIS
     Route: 048
     Dates: end: 20070101

REACTIONS (9)
  - ANORECTAL DISCOMFORT [None]
  - BLOOD CHOLESTEROL INCREASED [None]
  - DIZZINESS [None]
  - HYPERTENSION [None]
  - JAW DISORDER [None]
  - OROPHARYNGEAL PAIN [None]
  - OSTEONECROSIS [None]
  - SPONDYLOLISTHESIS [None]
  - TOOTH DISORDER [None]
